FAERS Safety Report 8598857-6 (Version None)
Quarter: 2012Q3

REPORT INFORMATION
  Report Type: 
  Country: None (occurrence: None)
  Receive Date: 20120816
  Receipt Date: 19911118
  Transmission Date: 20120928
  Serious: Yes (Death)
  Sender: FDA-Public Use
  Company Number: US-ROCHE-1100685

PATIENT
  Age: 47 Year
  Sex: Male

DRUGS (7)
  1. SODIUM CHLORIDE [Concomitant]
     Dosage: 1000 CC
  2. DOPAMINE HCL [Concomitant]
  3. ACTIVASE [Suspect]
  4. ACTIVASE [Suspect]
  5. TRIDIL [Concomitant]
  6. HEPARIN [Concomitant]
     Dosage: 20000 UNITS
  7. ACTIVASE [Suspect]
     Indication: MYOCARDIAL INFARCTION

REACTIONS (1)
  - DEATH [None]
